FAERS Safety Report 22256581 (Version 1)
Quarter: 2023Q2

REPORT INFORMATION
  Report Type: Spontaneous
  Country: GB (occurrence: GB)
  Receive Date: 20230426
  Receipt Date: 20230426
  Transmission Date: 20230722
  Serious: Yes (Life-Threatening)
  Sender: FDA-Public Use
  Company Number: None

PATIENT
  Age: 39 Year
  Sex: Female
  Weight: 91 kg

DRUGS (1)
  1. METHOTREXATE SODIUM [Suspect]
     Active Substance: METHOTREXATE SODIUM
     Dosage: 15 MG
     Dates: start: 20100610

REACTIONS (9)
  - Dizziness [Unknown]
  - Incorrect product administration duration [Unknown]
  - Near death experience [Recovered/Resolved]
  - Feeling abnormal [Unknown]
  - Visual impairment [Unknown]
  - Off label use [Unknown]
  - Intentional product use issue [Unknown]
  - Product dose omission issue [Unknown]
  - Autoscopy [Recovered/Resolved]

NARRATIVE: CASE EVENT DATE: 20100101
